FAERS Safety Report 20195574 (Version 1)
Quarter: 2021Q4

REPORT INFORMATION
  Report Type: Report from Study
  Country: US (occurrence: US)
  Receive Date: 20211216
  Receipt Date: 20211216
  Transmission Date: 20220304
  Serious: Yes (Life-Threatening, Other)
  Sender: FDA-Public Use
  Company Number: US-TEVA-2021-US-1986843

PATIENT
  Age: 68 Year
  Sex: Male

DRUGS (9)
  1. PREDNISONE [Suspect]
     Active Substance: PREDNISONE
     Indication: Autoimmune haemolytic anaemia
     Dosage: 1 MG/KG DAILY; TAPER OVER 4 WEEKS STARTING AT 1 MG/KG/DAY DURING FIRST EPISODE
     Route: 065
  2. PREDNISONE [Suspect]
     Active Substance: PREDNISONE
     Dosage: 1 MG/KG DAILY; TAPER OVER 5 WEEKS STARTING AT 1MG/ KG/DAY DURING SECOND EPISODE
     Route: 065
  3. PREDNISONE [Suspect]
     Active Substance: PREDNISONE
     Dosage: 1MG/KG DURING THIRD EPISODE
     Route: 065
  4. PRIVIGEN [Suspect]
     Active Substance: HUMAN IMMUNOGLOBULIN G
     Indication: Autoimmune haemolytic anaemia
     Dosage: DOSE: 1 G/KG 2 DOSES
     Route: 042
  5. PRIVIGEN [Suspect]
     Active Substance: HUMAN IMMUNOGLOBULIN G
     Dosage: 4 DOSES, 75MG/M2 ONCE WEEKLY
     Route: 042
  6. PRIVIGEN [Suspect]
     Active Substance: HUMAN IMMUNOGLOBULIN G
     Dosage: DOSE: 1 G/KG 1 DOSE DURING THIRD EPISODE
     Route: 065
  7. INDOXIMOD [Concomitant]
     Active Substance: INDOXIMOD
     Indication: Metastatic malignant melanoma
     Route: 065
  8. NIVOLUMAB [Concomitant]
     Active Substance: NIVOLUMAB
     Indication: Metastatic malignant melanoma
     Route: 065
  9. IPILIMUMAB [Concomitant]
     Active Substance: IPILIMUMAB
     Indication: Metastatic malignant melanoma
     Route: 065

REACTIONS (1)
  - Therapy non-responder [Unknown]
